FAERS Safety Report 5675369-0 (Version None)
Quarter: 2008Q1

REPORT INFORMATION
  Report Type: 
  Country: None (occurrence: None)
  Receive Date: 20080320
  Receipt Date: 20080313
  Transmission Date: 20080703
  Serious: Yes (Other)
  Sender: FDA-Public Use
  Company Number: US-BOEHRINGER INGELHEIM GMBH, GERMANY-2008-BP-04140PF

PATIENT
  Sex: Male

DRUGS (12)
  1. SPIRIVA [Suspect]
     Dates: start: 20080307
  2. CHANTIX [Suspect]
     Indication: SMOKING CESSATION THERAPY
     Dates: start: 20080307
  3. PREDNISONE TAB [Suspect]
     Dates: start: 20080307
  4. ADVAIR DISKUS 100/50 [Suspect]
     Dates: start: 20080307
  5. BENAZEPRIL HYDROCHLORIDE [Suspect]
     Dates: start: 20080307
  6. MELOXICAM [Suspect]
     Dates: start: 20080307
  7. PREVACID [Concomitant]
     Dates: start: 20080307
  8. SINGULAIR [Concomitant]
     Dates: start: 20080307
  9. ALBUTEROL [Concomitant]
     Dates: start: 20080307
  10. NASONEX [Concomitant]
     Dates: start: 20080307
  11. WELLBUTRIN [Concomitant]
  12. DIOVAN [Concomitant]

REACTIONS (4)
  - AGGRESSION [None]
  - BLOOD PRESSURE INCREASED [None]
  - DRUG INTERACTION [None]
  - TREMOR [None]
